FAERS Safety Report 9717035 (Version 2)
Quarter: 2015Q3

REPORT INFORMATION
  Report Type: Spontaneous
  Country: US (occurrence: US)
  Receive Date: 20131127
  Receipt Date: 20150804
  Transmission Date: 20151125
  Serious: No
  Sender: FDA-Public Use
  Company Number: US-GILEAD-2009-0020716

PATIENT
  Age: 78 Year
  Sex: Female
  Weight: 62.6 kg

DRUGS (10)
  1. LUMIGAN .03% [Concomitant]
  2. COUMADIN [Suspect]
     Active Substance: WARFARIN SODIUM
  3. TORSEMIDE. [Concomitant]
     Active Substance: TORSEMIDE
  4. POTASSIUM CHLORIDE. [Concomitant]
     Active Substance: POTASSIUM CHLORIDE
  5. OXYGEN. [Concomitant]
     Active Substance: OXYGEN
  6. METOPROLOL [Concomitant]
     Active Substance: METOPROLOL
  7. TRUSOPT 2% [Concomitant]
  8. ALPHAGAN .1% [Concomitant]
  9. LETAIRIS [Suspect]
     Active Substance: AMBRISENTAN
     Indication: PULMONARY ARTERIAL HYPERTENSION
     Route: 048
     Dates: start: 20080318
  10. DILTIAZEM [Concomitant]
     Active Substance: DILTIAZEM

REACTIONS (5)
  - Hypoacusis [Unknown]
  - Contusion [Unknown]
  - Faeces discoloured [Unknown]
  - Oxygen saturation decreased [Unknown]
  - Visual acuity reduced [Unknown]
